FAERS Safety Report 7032487-2 (Version None)
Quarter: 2010Q4

REPORT INFORMATION
  Report Type: 
  Country: None (occurrence: None)
  Receive Date: 20101004
  Receipt Date: 20100907
  Transmission Date: 20110411
  Serious: Yes (Other)
  Sender: FDA-Public Use
  Company Number: DSA_43899_2010

PATIENT
  Age: 58 Year
  Sex: Male
  Weight: 94.3482 kg

DRUGS (3)
  1. WELLBUTRIN XL [Suspect]
     Indication: PRODUCT USED FOR UNKNOWN INDICATION
     Dosage: (150 MG QD)
  2. B12-VITAMIN [Concomitant]
  3. VITAMIN D [Concomitant]

REACTIONS (3)
  - NEGATIVE THOUGHTS [None]
  - OBSESSIVE THOUGHTS [None]
  - SUICIDAL IDEATION [None]
